FAERS Safety Report 15717228 (Version 1)
Quarter: 2018Q4

REPORT INFORMATION
  Report Type: Spontaneous
  Country: US (occurrence: US)
  Receive Date: 20181129
  Receipt Date: 20181129
  Transmission Date: 20190205
  Serious: Yes (Other)
  Sender: FDA-Public Use
  Company Number: None

PATIENT
  Age: 66 Year
  Sex: Female

DRUGS (1)
  1. CAPECITABINE 500MG [Suspect]
     Active Substance: CAPECITABINE
     Indication: GASTROINTESTINAL CARCINOMA
     Dosage: ?          OTHER FREQUENCY:SPLIT BETWEEN 2 DO;?
     Route: 048
     Dates: start: 20180910

REACTIONS (1)
  - Skin exfoliation [None]

NARRATIVE: CASE EVENT DATE: 20181128
